FAERS Safety Report 10141747 (Version 2)
Quarter: 2014Q2

REPORT INFORMATION
  Report Type: Spontaneous
  Country: US (occurrence: US)
  Receive Date: 20140429
  Receipt Date: 20140509
  Transmission Date: 20141212
  Serious: No
  Sender: FDA-Public Use
  Company Number: US-ASTRAZENECA-2014SE19017

PATIENT
  Age: 62 Year
  Sex: Female

DRUGS (5)
  1. PULMICORT FLEXHALER [Suspect]
     Indication: ASTHMA
     Dosage: 180 MCG, 1 PUFF TWO TIMES A DAY
     Route: 055
  2. UNSPECIFIED BLOOD PRESSURE MEDICATION [Concomitant]
  3. UNSPECIFIED ANTI-ANXIETY MEDICATION [Concomitant]
  4. SYNTHROID [Concomitant]
     Indication: THYROID DISORDER
  5. MAG OX [Concomitant]
     Indication: BLOOD MAGNESIUM DECREASED

REACTIONS (1)
  - Dyspnoea [Recovering/Resolving]
